FAERS Safety Report 6892685-5 (Version None)
Quarter: 2010Q3

REPORT INFORMATION
  Report Type: 
  Country: None (occurrence: None)
  Receive Date: 20100731
  Receipt Date: 20080816
  Transmission Date: 20110219
  Serious: No
  Sender: FDA-Public Use
  Company Number: US-PFIZER INC-2007103153

PATIENT
  Sex: Male
  Weight: 65.77 kg

DRUGS (2)
  1. NEURONTIN [Suspect]
     Indication: INTERMITTENT EXPLOSIVE DISORDER
     Route: 048
  2. ACETYLSALICYLIC ACID SRT [Suspect]
     Indication: MYOCARDIAL INFARCTION
     Dosage: QD: EVERY DAY
     Route: 048

REACTIONS (1)
  - CONTUSION [None]
